FAERS Safety Report 8815020 (Version 1)
Quarter: 2012Q4

REPORT INFORMATION
  Report Type: 
  Country: US (occurrence: US)
  Receive Date: 20120928
  Receipt Date: 20120928
  Transmission Date: 20130627
  Serious: Yes (Hospitalization)
  Sender: FDA-Public Use
  Company Number: US-BAYER-2012-100431

PATIENT
  Age: 30 Year
  Sex: Female
  Weight: 69.52 kg

DRUGS (3)
  1. BEYAZ [Suspect]
  2. TYLENOL [Concomitant]
     Dosage: UNK
     Dates: start: 20110410
  3. ANTIBIOTICS [Concomitant]

REACTIONS (1)
  - Pulmonary embolism [None]
